FAERS Safety Report 6933594-2 (Version None)
Quarter: 2010Q3

REPORT INFORMATION
  Report Type: 
  Country: None (occurrence: None)
  Receive Date: 20100820
  Receipt Date: 20100811
  Transmission Date: 20110219
  Serious: Yes (Hospitalization, Other)
  Sender: FDA-Public Use
  Company Number: NZ-ABBOTT-06P-118-0325442-00

PATIENT
  Sex: Female
  Weight: 71 kg

DRUGS (2)
  1. SIBUTRAMINE HYDROCHLORIDE MONOHYDRATE [Suspect]
     Indication: PRODUCT USED FOR UNKNOWN INDICATION
     Route: 048
     Dates: start: 20030429, end: 20030901
  2. SIBUTRAMINE HYDROCHLORIDE MONOHYDRATE [Suspect]

REACTIONS (3)
  - CHEST PAIN [None]
  - OTOSCLEROSIS [None]
  - VITREOUS DETACHMENT [None]
